FAERS Safety Report 16044192 (Version 2)
Quarter: 2019Q2

REPORT INFORMATION
  Report Type: Spontaneous
  Country: US (occurrence: US)
  Receive Date: 20190306
  Receipt Date: 20190424
  Transmission Date: 20190711
  Serious: No
  Sender: FDA-Public Use
  Company Number: US-BAUSCH-BL-2018-020052

PATIENT
  Age: 63 Year
  Sex: Female

DRUGS (3)
  1. PROLENSA [Suspect]
     Active Substance: BROMFENAC SODIUM
     Indication: MACULAR OEDEMA
  2. PROLENSA [Suspect]
     Active Substance: BROMFENAC SODIUM
     Indication: RETINOPATHY PROLIFERATIVE
     Dosage: TWO DROPS INTO EACH EYE DAILY
     Route: 047
  3. PROLENSA [Suspect]
     Active Substance: BROMFENAC SODIUM
     Indication: POSTOPERATIVE CARE

REACTIONS (2)
  - Visual impairment [Unknown]
  - Glare [Unknown]
